FAERS Safety Report 9239150 (Version 2)
Quarter: 2013Q2

REPORT INFORMATION
  Report Type: Spontaneous
  Country: IT (occurrence: IT)
  Receive Date: 20130418
  Receipt Date: 20130528
  Transmission Date: 20140414
  Serious: Yes (Hospitalization)
  Sender: FDA-Public Use
  Company Number: IT-PFIZER INC-2013119117

PATIENT
  Age: 48 Year
  Sex: Female

DRUGS (6)
  1. XANAX [Suspect]
     Indication: PSYCHOTIC DISORDER
     Dosage: 4 DF, TOTAL DOSE
     Route: 048
     Dates: start: 20130228, end: 20130228
  2. SEROQUEL [Suspect]
     Indication: PSYCHOTIC DISORDER
     Dosage: 40 DF, TOTAL DOSE
     Route: 048
     Dates: start: 20130228, end: 20130228
  3. CYMBALTA [Concomitant]
     Indication: PSYCHOTIC DISORDER
     Dosage: 90 MG, UNK
     Route: 048
     Dates: start: 20130228
  4. METHOTREXATE [Concomitant]
     Dosage: 3 DF, UNK
     Route: 048
     Dates: start: 20130228
  5. FOLINA [Concomitant]
     Dosage: 2 DF, UNK
     Route: 048
     Dates: start: 20130228
  6. ENBREL [Concomitant]
     Dosage: 1 DF, UNK
     Route: 058
     Dates: start: 20130228

REACTIONS (6)
  - Overdose [Recovered/Resolved]
  - Off label use [Recovered/Resolved]
  - Drug abuse [Recovered/Resolved]
  - Altered state of consciousness [Recovered/Resolved]
  - Hypopnoea [Recovered/Resolved]
  - Sopor [Recovered/Resolved]
